FAERS Safety Report 8832327 (Version 2)
Quarter: 2012Q4

REPORT INFORMATION
  Report Type: 
  Country: US (occurrence: US)
  Receive Date: 20121009
  Receipt Date: 20121116
  Transmission Date: 20130627
  Serious: Yes (Death, Other)
  Sender: FDA-Public Use
  Company Number: US-ROCHE-1140956

PATIENT
  Age: 27 Year
  Sex: Male
  Weight: 127.12 kg

DRUGS (1)
  1. ACCUTANE [Suspect]
     Indication: ACNE
     Route: 065
     Dates: start: 20011127, end: 20040619

REACTIONS (8)
  - Death [Fatal]
  - Colitis ulcerative [Unknown]
  - Cardiac disorder [Unknown]
  - Inflammatory bowel disease [Unknown]
  - Depression [Unknown]
  - Pancreatitis [Unknown]
  - Suicidal ideation [Unknown]
  - Large intestine polyp [Unknown]
